FAERS Safety Report 24875152 (Version 1)
Quarter: 2025Q1

REPORT INFORMATION
  Report Type: Spontaneous
  Country: TW (occurrence: TW)
  Receive Date: 20250122
  Receipt Date: 20250122
  Transmission Date: 20250409
  Serious: Yes (Other)
  Sender: DAIICHI
  Company Number: TW-DSJP-DS-2025-119118-TW

PATIENT
  Age: 47 Year
  Sex: Female
  Weight: 55 kg

DRUGS (9)
  1. TRASTUZUMAB DERUXTECAN [Suspect]
     Active Substance: TRASTUZUMAB DERUXTECAN
     Indication: Breast cancer metastatic
     Dosage: 200 MG, ONCE EVERY 3 WK (4TH LINE FOR 7 MONTHS)
     Route: 042
  2. XGEVA [Suspect]
     Active Substance: DENOSUMAB
     Indication: Adjuvant therapy
     Route: 065
  3. EXEMESTANE [Suspect]
     Active Substance: EXEMESTANE
     Indication: Adjuvant therapy
     Route: 065
  4. LETROZOLE [Suspect]
     Active Substance: LETROZOLE
     Indication: Adjuvant therapy
     Route: 065
  5. XELODA [Suspect]
     Active Substance: CAPECITABINE
     Indication: Adjuvant therapy
     Route: 065
  6. VINORELBINE [Suspect]
     Active Substance: VINORELBINE TARTRATE
     Indication: Adjuvant therapy
     Route: 065
  7. NERATINIB [Suspect]
     Active Substance: NERATINIB
     Indication: Adjuvant therapy
     Route: 065
  8. UFT [Suspect]
     Active Substance: TEGAFUR\URACIL
     Indication: Adjuvant therapy
     Route: 065
  9. CYCLOPHOSPHAMIDE [Suspect]
     Active Substance: CYCLOPHOSPHAMIDE
     Indication: Adjuvant therapy
     Route: 065

REACTIONS (2)
  - Metastases to central nervous system [Unknown]
  - Incorrect dose administered [Unknown]
